FAERS Safety Report 8093478-6 (Version None)
Quarter: 2012Q1

REPORT INFORMATION
  Report Type: 
  Country: None (occurrence: None)
  Receive Date: 20120129
  Receipt Date: 20110901
  Transmission Date: 20120608
  Serious: No
  Sender: FDA-Public Use
  Company Number: US-ABBOTT-11P-163-0851313-00

PATIENT
  Sex: Female
  Weight: 93.524 kg

DRUGS (3)
  1. HYDROCODONE BITARTRATE [Concomitant]
     Indication: RHEUMATOID ARTHRITIS
  2. HUMIRA [Suspect]
     Indication: RHEUMATOID ARTHRITIS
     Route: 058
     Dates: start: 20110701
  3. PREDNISONE TAB [Suspect]
     Indication: RHEUMATOID ARTHRITIS
     Dates: end: 20110801

REACTIONS (4)
  - MALAISE [None]
  - HEADACHE [None]
  - JOINT SWELLING [None]
  - HYPERTENSION [None]
